FAERS Safety Report 17878027 (Version 4)
Quarter: 2022Q2

REPORT INFORMATION
  Report Type: Report from Study
  Country: FR (occurrence: FR)
  Receive Date: 20200609
  Receipt Date: 20220510
  Transmission Date: 20220721
  Serious: Yes (Hospitalization)
  Sender: FDA-Public Use
  Company Number: FR-REGENERON PHARMACEUTICALS, INC.-2020-12876

PATIENT
  Age: 83 Year
  Sex: Male

DRUGS (12)
  1. CEMIPLIMAB [Suspect]
     Active Substance: CEMIPLIMAB
     Indication: Squamous cell carcinoma of skin
     Dosage: 600 MG, Q4W
     Route: 042
     Dates: start: 20190426, end: 20191106
  2. AMLODIPINE BESYLATE [Concomitant]
     Active Substance: AMLODIPINE BESYLATE
     Indication: Hypertension
     Dosage: 5 MG, QD
     Route: 048
  3. ATARAX                             /00058401/ [Concomitant]
     Indication: Pruritus
     Dosage: 25 MG, UNK
     Route: 048
     Dates: start: 20191127, end: 20200102
  4. CETIRIZINE [Concomitant]
     Active Substance: CETIRIZINE HYDROCHLORIDE
     Indication: Pruritus
     Dosage: 10 MG, UNK
     Route: 048
     Dates: start: 20191127, end: 20200102
  5. COZAAR [Concomitant]
     Active Substance: LOSARTAN POTASSIUM
     Indication: Hypertension
     Dosage: 50 MG, QD
     Route: 048
     Dates: start: 20191010, end: 20200226
  6. CRESTOR [Concomitant]
     Active Substance: ROSUVASTATIN CALCIUM
     Indication: Dyslipidaemia
     Dosage: 5 MG, QD
     Route: 048
  7. DAFALGAN CODEINE [Concomitant]
     Active Substance: ACETAMINOPHEN\CODEINE PHOSPHATE
     Indication: Tumour pain
     Dosage: 1 G, AS NECESSARY
     Route: 048
  8. DIPROSONE                          /00008502/ [Concomitant]
     Indication: Pruritus
     Dosage: 1 APPLICATION, AS NECESSARY
     Route: 061
     Dates: start: 20190813, end: 20200102
  9. KARDEGIC [Concomitant]
     Active Substance: ASPIRIN DL-LYSINE
     Indication: Tumour pain
     Dosage: 75 MG, QD
     Route: 048
     Dates: end: 20200221
  10. BISOPROLOL FUMARATE\HYDROCHLOROTHIAZIDE [Concomitant]
     Active Substance: BISOPROLOL FUMARATE\HYDROCHLOROTHIAZIDE
     Indication: Hypertension
     Dosage: 10 MG, QD
     Route: 048
  11. METFORMINE                         /00082701/ [Concomitant]
     Indication: Type 2 diabetes mellitus
     Dosage: 850 MG, BID
     Route: 048
  12. POTASSIUM CHLORIDE [Concomitant]
     Active Substance: POTASSIUM CHLORIDE
     Indication: Prophylaxis
     Dosage: 600 MG, QD
     Route: 048
     Dates: start: 202001

REACTIONS (1)
  - Pemphigoid [Recovered/Resolved]

NARRATIVE: CASE EVENT DATE: 20191206
